FAERS Safety Report 8828109 (Version 3)
Quarter: 2012Q4

REPORT INFORMATION
  Report Type: 
  Country: JP (occurrence: JP)
  Receive Date: 20121008
  Receipt Date: 20121123
  Transmission Date: 20130627
  Serious: Yes (Other)
  Sender: FDA-Public Use
  Company Number: PHHY2012JP087005

PATIENT
  Age: 79 Year
  Sex: Male

DRUGS (1)
  1. ZOLEDRONIC ACID [Suspect]
     Indication: METASTASES TO BONE
     Dosage: 4 mg per admnistration
     Route: 042
     Dates: start: 200709, end: 200912

REACTIONS (4)
  - Osteonecrosis of jaw [Not Recovered/Not Resolved]
  - Periodontitis [Unknown]
  - Osteomyelitis [Recovering/Resolving]
  - Rhinorrhoea [Unknown]
